FAERS Safety Report 7966002-3 (Version None)
Quarter: 2011Q4

REPORT INFORMATION
  Report Type: 
  Country: None (occurrence: None)
  Receive Date: 20111208
  Receipt Date: 20111130
  Transmission Date: 20120403
  Serious: Yes (Other)
  Sender: FDA-Public Use
  Company Number: CHPA2011US017110

PATIENT
  Sex: Male

DRUGS (4)
  1. EXCEDRIN TENSION HEADACHE [Suspect]
     Indication: EAR PAIN
  2. EXCEDRIN TENSION HEADACHE [Suspect]
     Indication: BACK PAIN
     Dosage: 1-2 DF, PRN
     Route: 048
  3. EXCEDRIN TENSION HEADACHE [Suspect]
     Indication: SINUS HEADACHE
  4. EXCEDRIN TENSION HEADACHE [Suspect]
     Indication: MULTIPLE ALLERGIES

REACTIONS (25)
  - ASTHMA [None]
  - EAR INFECTION [None]
  - SCIATIC NERVE NEUROPATHY [None]
  - DRUG INEFFECTIVE FOR UNAPPROVED INDICATION [None]
  - HEPATIC NEOPLASM [None]
  - FALL [None]
  - NAUSEA [None]
  - DISCOMFORT [None]
  - UNDERDOSE [None]
  - SINUS HEADACHE [None]
  - DIZZINESS [None]
  - DRUG DEPENDENCE [None]
  - DEPRESSION [None]
  - EAR PAIN [None]
  - OFF LABEL USE [None]
  - BRAIN NEOPLASM [None]
  - COUGH [None]
  - ANXIETY [None]
  - THERAPEUTIC RESPONSE UNEXPECTED [None]
  - LUNG NEOPLASM [None]
  - MULTIPLE CHEMICAL SENSITIVITY [None]
  - RHINITIS ALLERGIC [None]
  - CHRONIC SINUSITIS [None]
  - BALANCE DISORDER [None]
  - VOMITING [None]
